FAERS Safety Report 25968405 (Version 1)
Quarter: 2025Q4

REPORT INFORMATION
  Report Type: Spontaneous
  Country: EU (occurrence: EU)
  Receive Date: 20251028
  Receipt Date: 20251028
  Transmission Date: 20260118
  Serious: Yes (Other)
  Sender: RANBAXY
  Company Number: EU-KRKA-DE2025K11397LIT

PATIENT
  Age: 80 Year
  Sex: Female

DRUGS (2)
  1. LENALIDOMIDE [Suspect]
     Active Substance: LENALIDOMIDE
     Indication: Diffuse large B-cell lymphoma recurrent
     Dosage: SECOND-LINE THERAPY
     Route: 065
     Dates: start: 2022, end: 202304
  2. TAFASITAMAB [Suspect]
     Active Substance: TAFASITAMAB
     Indication: Diffuse large B-cell lymphoma recurrent
     Dosage: SECOND-LINE THERAPY
     Route: 065
     Dates: start: 2022, end: 202304

REACTIONS (2)
  - Pancytopenia [Unknown]
  - Off label use [Unknown]
